FAERS Safety Report 23152001 (Version 1)
Quarter: 2023Q4

REPORT INFORMATION
  Report Type: Spontaneous
  Country: IT (occurrence: IT)
  Receive Date: 20231107
  Receipt Date: 20231107
  Transmission Date: 20240110
  Serious: Yes (Hospitalization, Other)
  Sender: FDA-Public Use
  Company Number: IT-JNJFOC-20231113190

PATIENT
  Age: 44 Year
  Sex: Male
  Weight: 64 kg

DRUGS (3)
  1. YONDELIS [Suspect]
     Active Substance: TRABECTEDIN
     Indication: Leiomyosarcoma metastatic
     Route: 042
     Dates: start: 20230508, end: 20230509
  2. DEXAMETHASONE [Concomitant]
     Active Substance: DEXAMETHASONE
     Indication: Drug toxicity prophylaxis
  3. ENOXAPARIN [Concomitant]
     Active Substance: ENOXAPARIN
     Indication: Thrombosis prophylaxis

REACTIONS (5)
  - Skin toxicity [Recovering/Resolving]
  - Thrombophlebitis [Recovering/Resolving]
  - Infusion site infection [Recovering/Resolving]
  - Administration site extravasation [Recovering/Resolving]
  - Infusion site necrosis [Recovering/Resolving]

NARRATIVE: CASE EVENT DATE: 20230518
